FAERS Safety Report 23338275 (Version 1)
Quarter: 2023Q4

REPORT INFORMATION
  Report Type: Spontaneous
  Country: US (occurrence: None)
  Receive Date: 20231224
  Receipt Date: 20231224
  Transmission Date: 20240110
  Serious: Yes (unspecified)
  Sender: FDA-Public Use
  Company Number: None

PATIENT
  Age: 23 Year
  Sex: Female
  Weight: 63 kg

DRUGS (4)
  1. HERBALS\TETRAHYDROCANNABINOL MIXED [Suspect]
     Active Substance: HERBALS\TETRAHYDROCANNABINOL MIXED
     Indication: Sleep disorder
     Dosage: OTHER QUANTITY : 1 GUMMY;?FREQUENCY : DAILY;?
     Route: 048
     Dates: start: 20231222, end: 20231222
  2. LAMOTRIGINE [Concomitant]
     Active Substance: LAMOTRIGINE
  3. PLAQUENIL [Concomitant]
     Active Substance: HYDROXYCHLOROQUINE SULFATE
  4. Birth control [Concomitant]

REACTIONS (6)
  - Nausea [None]
  - Dizziness [None]
  - Vertigo [None]
  - Anxiety [None]
  - Paranoia [None]
  - Vomiting [None]

NARRATIVE: CASE EVENT DATE: 20231222
